FAERS Safety Report 24426969 (Version 1)
Quarter: 2024Q4

REPORT INFORMATION
  Report Type: Spontaneous
  Country: GB (occurrence: GB)
  Receive Date: 20241011
  Receipt Date: 20241011
  Transmission Date: 20250114
  Serious: Yes (Hospitalization, Disabling, Other)
  Sender: MYLAN
  Company Number: GB-MHRA-TPP1948806C10586283YC1728034957338

PATIENT
  Age: 65 Year
  Sex: Male
  Weight: 105 kg

DRUGS (11)
  1. METFORMIN [Suspect]
     Active Substance: METFORMIN HYDROCHLORIDE
     Indication: Ill-defined disorder
     Dosage: 1 GRAM, QD (WITH BREAKFAST FOR 1)
     Route: 065
     Dates: start: 20240712
  2. LORAZEPAM [Concomitant]
     Active Substance: LORAZEPAM
     Indication: Ill-defined disorder
     Dosage: UNK (CEDURE, CAN REPEAT DOSE IF NOT WELL SETTLED)
     Route: 065
     Dates: start: 20240905, end: 20240906
  3. TAMSULOSIN HYDROCHLORIDE [Concomitant]
     Active Substance: TAMSULOSIN HYDROCHLORIDE
     Indication: Ill-defined disorder
     Dosage: 1 DOSAGE FORM, QD (TAKE ONE CAPSULE DAILY)
     Route: 065
     Dates: start: 20240910
  4. TIRZEPATIDE [Concomitant]
     Active Substance: TIRZEPATIDE
     Indication: Ill-defined disorder
     Dosage: 2.5 MILLIGRAM, QW (INJECT 2.5MG ONCE WEEKLY)
     Route: 065
     Dates: start: 20240916
  5. LANSOPRAZOLE [Concomitant]
     Active Substance: LANSOPRAZOLE
     Indication: Ill-defined disorder
     Dosage: 1 DOSAGE FORM, QD (TAKE ONE CAPSULE ONCE A DAY)
     Route: 065
     Dates: start: 20231205
  6. MIRTAZAPINE [Concomitant]
     Active Substance: MIRTAZAPINE
     Indication: Ill-defined disorder
     Dosage: UNK (ONE AT NIGHT)
     Route: 065
     Dates: start: 20240925
  7. DIAZEPAM [Concomitant]
     Active Substance: DIAZEPAM
     Indication: Ill-defined disorder
     Dosage: UNK (AS NEEDED)
     Route: 065
  8. AMLODIPINE [Concomitant]
     Active Substance: AMLODIPINE BESYLATE
     Indication: Ill-defined disorder
     Dosage: 1 DOSAGE FORM, QD (TAKE ONE TABLET ONCE A DAY)
     Route: 065
     Dates: start: 20231205
  9. ASPIRIN [Concomitant]
     Active Substance: ASPIRIN
     Indication: Ill-defined disorder
     Dosage: 1 DOSAGE FORM, QD (TAKE ONE TABLET ONCE A DAY.  )
     Route: 065
     Dates: start: 20231205
  10. ATORVASTATIN [Concomitant]
     Active Substance: ATORVASTATIN
     Indication: Ill-defined disorder
     Dosage: 1 DOSAGE FORM, QD (TAKE ONE TABLET ONCE A DAY)
     Route: 065
     Dates: start: 20231205
  11. Sukkarto sr [Concomitant]
     Indication: Ill-defined disorder
     Dosage: 2 DOSAGE FORM, AM (TAKE 2 DAILY IN THE MORNING WITH FOOD))
     Route: 065
     Dates: start: 20240808

REACTIONS (1)
  - Oropharyngeal spasm [Recovering/Resolving]
